FAERS Safety Report 19705302 (Version 1)
Quarter: 2021Q3

REPORT INFORMATION
  Report Type: Report from Study
  Country: CA (occurrence: CA)
  Receive Date: 20210816
  Receipt Date: 20210816
  Transmission Date: 20211014
  Serious: Yes (Other)
  Sender: FDA-Public Use
  Company Number: CA-SA-2020SA169747

PATIENT
  Sex: Male

DRUGS (5)
  1. DUPILUMAB [Suspect]
     Active Substance: DUPILUMAB
     Indication: DERMATITIS ATOPIC
     Dosage: 600 MG, 1X
  2. COVID?19 VACCINE [Concomitant]
  3. LYDERM [FLUOCINONIDE] [Concomitant]
     Active Substance: FLUOCINONIDE
     Indication: DERMATITIS ATOPIC
     Dosage: UNK UNK, PRN
     Route: 023
  4. METHOTREXATE. [Concomitant]
     Active Substance: METHOTREXATE
  5. DUPILUMAB [Suspect]
     Active Substance: DUPILUMAB
     Dosage: 300 MG, QOW
     Route: 058
     Dates: start: 20190505

REACTIONS (3)
  - Hepatic cirrhosis [Unknown]
  - Incorrect dose administered [Unknown]
  - Intentional dose omission [Unknown]
